FAERS Safety Report 7515888-5 (Version None)
Quarter: 2011Q2

REPORT INFORMATION
  Report Type: 
  Country: None (occurrence: None)
  Receive Date: 20110601
  Receipt Date: 20110527
  Transmission Date: 20111010
  Serious: No
  Sender: FDA-Public Use
  Company Number: US-PFIZER INC-2011115572

PATIENT
  Sex: Female
  Weight: 54 kg

DRUGS (1)
  1. RELPAX [Suspect]
     Indication: MIGRAINE
     Dosage: 20 MG, ONE OR TWO TIMES AS NEEDED
     Route: 048
     Dates: start: 20110502, end: 20110503

REACTIONS (2)
  - LIP SWELLING [None]
  - CHEILITIS [None]
